FAERS Safety Report 19412270 (Version 2)
Quarter: 2021Q2

REPORT INFORMATION
  Report Type: Spontaneous
  Country: JP (occurrence: JP)
  Receive Date: 20210614
  Receipt Date: 20210629
  Transmission Date: 20210717
  Serious: Yes (Other)
  Sender: FDA-Public Use
  Company Number: NVSJ2021JP006744

PATIENT
  Age: 97 Year
  Sex: Female
  Weight: 41 kg

DRUGS (2)
  1. LEVOFLOXACIN. [Concomitant]
     Active Substance: LEVOFLOXACIN
     Indication: INFECTION PROPHYLAXIS
     Dosage: 1 DRP, QID
     Route: 047
     Dates: start: 20210221, end: 20210303
  2. BEOVU [Suspect]
     Active Substance: BROLUCIZUMAB-DBLL
     Indication: NEOVASCULAR AGE-RELATED MACULAR DEGENERATION
     Dosage: 6 MG
     Route: 031
     Dates: start: 20210224, end: 20210224

REACTIONS (8)
  - Anterior chamber flare [Recovered/Resolved]
  - Anterior chamber cell [Recovered/Resolved]
  - Vitreous floaters [Recovered/Resolved]
  - Blindness transient [Recovered/Resolved]
  - Uveitis [Recovered/Resolved]
  - Anterior chamber inflammation [Unknown]
  - Vitreous opacities [Unknown]
  - Vision blurred [Unknown]

NARRATIVE: CASE EVENT DATE: 20210303
